FAERS Safety Report 10103452 (Version 1)
Quarter: 2014Q2

REPORT INFORMATION
  Report Type: Spontaneous
  Country: ES (occurrence: ES)
  Receive Date: 20140424
  Receipt Date: 20140424
  Transmission Date: 20141212
  Serious: Yes (Death, Hospitalization, Other)
  Sender: FDA-Public Use
  Company Number: ES-WATSON-2014-07955

PATIENT
  Age: 78 Year
  Sex: Female

DRUGS (1)
  1. METFORMIN (UNKNOWN) [Suspect]
     Indication: TYPE 2 DIABETES MELLITUS
     Dosage: 850 MG, Q24H
     Route: 065

REACTIONS (2)
  - Lactic acidosis [Fatal]
  - Multi-organ failure [Fatal]
